FAERS Safety Report 12846492 (Version 2)
Quarter: 2016Q4

REPORT INFORMATION
  Report Type: Spontaneous
  Country: US (occurrence: US)
  Receive Date: 20161014
  Receipt Date: 20161110
  Transmission Date: 20170207
  Serious: Yes (Death, Hospitalization)
  Sender: FDA-Public Use
  Company Number: US-UNITED THERAPEUTICS-UNT-2016-015817

PATIENT
  Sex: Female

DRUGS (1)
  1. TYVASO [Suspect]
     Active Substance: TREPROSTINIL
     Indication: PULMONARY ARTERIAL HYPERTENSION
     Dosage: 54 ?G, QID
     Dates: start: 20160404, end: 20161008

REACTIONS (5)
  - Cardiac failure [Fatal]
  - Renal failure [Fatal]
  - Back pain [Unknown]
  - Hereditary haemorrhagic telangiectasia [Fatal]
  - Cardiomegaly [Unknown]

NARRATIVE: CASE EVENT DATE: 20161004
